FAERS Safety Report 19232114 (Version 1)
Quarter: 2021Q2

REPORT INFORMATION
  Report Type: Spontaneous
  Country: US (occurrence: US)
  Receive Date: 20210507
  Receipt Date: 20210507
  Transmission Date: 20210717
  Serious: No
  Sender: FDA-Public Use
  Company Number: US-APOTEX-2021AP010963

PATIENT
  Age: 78 Year
  Sex: Male

DRUGS (4)
  1. DOXYCYCLINE. [Suspect]
     Active Substance: DOXYCYCLINE
     Indication: DEVICE RELATED INFECTION
     Dosage: UNK
     Route: 065
  2. CEPHALEXIN [CEFALEXIN] [Concomitant]
     Active Substance: CEPHALEXIN
     Indication: DEVICE RELATED INFECTION
     Dosage: 500 MILLIGRAM, TID
     Route: 048
  3. TMP?SMX [Concomitant]
     Active Substance: SULFAMETHOXAZOLE\TRIMETHOPRIM
     Indication: DEVICE RELATED INFECTION
     Dosage: UNK
     Route: 065
  4. OXACILLIN [Concomitant]
     Active Substance: OXACILLIN SODIUM
     Indication: DEVICE RELATED INFECTION
     Dosage: UNK
     Route: 042

REACTIONS (1)
  - Nausea [Unknown]
